FAERS Safety Report 8047326-0 (Version None)
Quarter: 2012Q1

REPORT INFORMATION
  Report Type: 
  Country: None (occurrence: None)
  Receive Date: 20120116
  Receipt Date: 20120112
  Transmission Date: 20120608
  Serious: Yes (Death)
  Sender: FDA-Public Use
  Company Number: JP-BAYER-2010-002884

PATIENT
  Age: 62 Year
  Sex: Female
  Weight: 83 kg

DRUGS (4)
  1. SORAFENIB (RAF KINASE INHIBITOR) [Suspect]
     Dosage: DAILY DOSE 600 MG
     Route: 048
     Dates: start: 20090618, end: 20090625
  2. SORAFENIB (RAF KINASE INHIBITOR) [Suspect]
     Indication: HEPATIC NEOPLASM MALIGNANT
     Dosage: UNK
     Route: 048
     Dates: start: 20090529
  3. SORAFENIB (RAF KINASE INHIBITOR) [Suspect]
     Dosage: DAILY DOSE 400 MG
     Route: 048
     Dates: start: 20090721, end: 20101122
  4. SORAFENIB (RAF KINASE INHIBITOR) [Suspect]
     Dosage: DAILY DOSE 800 MG
     Route: 048
     Dates: start: 20090601, end: 20090617

REACTIONS (4)
  - PALMAR-PLANTAR ERYTHRODYSAESTHESIA SYNDROME [None]
  - HEPATIC NEOPLASM MALIGNANT [None]
  - RASH [None]
  - NEOPLASM PROGRESSION [None]
